FAERS Safety Report 6575079-1 (Version None)
Quarter: 2010Q1

REPORT INFORMATION
  Report Type: 
  Country: None (occurrence: None)
  Receive Date: 20100209
  Receipt Date: 20100203
  Transmission Date: 20100710
  Serious: Yes (Other)
  Sender: FDA-Public Use
  Company Number: US-SANOFI-AVENTIS-2009SA005399

PATIENT
  Sex: Male

DRUGS (11)
  1. MULTAQ [Suspect]
     Indication: ATRIAL FIBRILLATION
     Route: 048
     Dates: start: 20091102
  2. CARDIZEM [Concomitant]
     Indication: BLOOD PRESSURE
     Route: 048
     Dates: start: 19970101, end: 20090101
  3. CARDIZEM [Concomitant]
     Indication: HEART RATE
     Route: 048
     Dates: start: 19970101, end: 20090101
  4. CARDIZEM [Concomitant]
     Route: 048
     Dates: start: 20090101
  5. CARDIZEM [Concomitant]
     Route: 048
     Dates: start: 20090101
  6. ATENOLOL [Concomitant]
     Indication: BLOOD PRESSURE
     Route: 048
     Dates: start: 20080101
  7. ATENOLOL [Concomitant]
     Indication: HEART RATE
     Route: 048
     Dates: start: 20080101
  8. MAGNESIUM OXIDE [Concomitant]
     Route: 048
     Dates: start: 19970101
  9. RAMIPRIL [Concomitant]
     Indication: BLOOD PRESSURE
     Route: 048
  10. WARFARIN SODIUM [Concomitant]
     Indication: THROMBOSIS PROPHYLAXIS
     Route: 048
     Dates: start: 19990101
  11. XANAX [Concomitant]
     Route: 048

REACTIONS (5)
  - ABDOMINAL DISTENSION [None]
  - ATRIAL FIBRILLATION [None]
  - DYSPNOEA [None]
  - FATIGUE [None]
  - INCORRECT DOSE ADMINISTERED [None]
